FAERS Safety Report 5764830-6 (Version None)
Quarter: 2008Q2

REPORT INFORMATION
  Report Type: 
  Country: None (occurrence: None)
  Receive Date: 20080611
  Receipt Date: 20080603
  Transmission Date: 20081010
  Serious: Yes (Other)
  Sender: FDA-Public Use
  Company Number: US-BAYER-200824874NA

PATIENT
  Sex: Female

DRUGS (5)
  1. MAGNEVIST [Suspect]
     Indication: ANGIOGRAM
  2. OMNISCAN [Suspect]
     Indication: ANGIOGRAM
  3. OPTIMARK [Suspect]
     Indication: ANGIOGRAM
  4. MULTIHANCE [Suspect]
     Indication: ANGIOGRAM
  5. PROHANCE [Suspect]
     Indication: ANGIOGRAM

REACTIONS (12)
  - ANXIETY [None]
  - EMOTIONAL DISTRESS [None]
  - FIBROSIS [None]
  - GENERAL PHYSICAL HEALTH DETERIORATION [None]
  - INJURY [None]
  - JOINT CONTRACTURE [None]
  - MOBILITY DECREASED [None]
  - MUSCLE CONTRACTURE [None]
  - NEPHROGENIC SYSTEMIC FIBROSIS [None]
  - PAIN [None]
  - SCAR [None]
  - SKIN FIBROSIS [None]
